FAERS Safety Report 9781091 (Version 7)
Quarter: 2014Q2

REPORT INFORMATION
  Report Type: Report from Study
  Country: FR (occurrence: FR)
  Receive Date: 20131224
  Receipt Date: 20140424
  Transmission Date: 20141212
  Serious: Yes (Life-Threatening, Hospitalization)
  Sender: FDA-Public Use
  Company Number: PHHO2013FR016704

PATIENT
  Sex: 0

DRUGS (14)
  1. QGE031 [Suspect]
     Dosage: 120 MG/ML, QW2
     Route: 058
     Dates: start: 20131030, end: 20131115
  2. BISOPROLOL [Suspect]
     Indication: ARRHYTHMIA
     Dosage: 5 MG, UNK
     Dates: start: 20131212, end: 20131212
  3. BURINEX [Concomitant]
     Indication: HYPERTENSION
     Dosage: UNK
     Dates: start: 20130824
  4. OSTRAM [Concomitant]
     Dosage: UNK
     Dates: start: 20131009
  5. ATARAX [Concomitant]
     Indication: PRURITUS
     Dosage: UNK
     Dates: start: 20131009
  6. SYMBICORT [Concomitant]
     Indication: ASTHMA
     Dosage: 400 / TWICE PER DAY
     Dates: start: 20130701
  7. PLAVIX [Concomitant]
     Indication: HYPERTENSION
     Dosage: 75 / ONCE PER DAY
     Dates: start: 201212
  8. AERIUS [Concomitant]
     Indication: PRURITUS
     Dosage: UNK
     Dates: start: 20130502
  9. DIFFU-K [Concomitant]
     Dosage: 2 DF, QD
     Dates: start: 20131009
  10. ODRIK [Concomitant]
     Indication: HYPERTENSION
     Dosage: 2 MG, QD
  11. TARKA LP [Concomitant]
     Indication: HYPERTENSION
     Dosage: UNK
     Dates: start: 201202
  12. FENOFIBRATE [Concomitant]
     Indication: HYPERCHOLESTEROLAEMIA
     Dosage: 160 / ONCE PER DAY
  13. INEXIUM//ESOMEPRAZOLE MAGNESIUM [Concomitant]
     Dosage: UNK
     Dates: start: 201308
  14. CORTANCYL [Concomitant]
     Dosage: 30 MG, QD
     Dates: start: 20131009

REACTIONS (5)
  - Cardiogenic shock [Recovered/Resolved]
  - Staphylococcal sepsis [Recovered/Resolved]
  - Arrhythmia [Recovered/Resolved]
  - Gastrointestinal haemorrhage [Unknown]
  - Hepatic failure [Recovered/Resolved]
